FAERS Safety Report 12181405 (Version 1)
Quarter: 2016Q1

REPORT INFORMATION
  Report Type: Spontaneous
  Country: US (occurrence: US)
  Receive Date: 20160315
  Receipt Date: 20160315
  Transmission Date: 20160526
  Serious: Yes (Hospitalization, Other)
  Sender: FDA-Public Use
  Company Number: US-APOTEX-2016AP007141

PATIENT
  Age: 37 Year
  Sex: Female

DRUGS (2)
  1. PAROXETINE HYDROCHLORIDE. [Suspect]
     Active Substance: PAROXETINE HYDROCHLORIDE
     Indication: PRODUCT USED FOR UNKNOWN INDICATION
     Dosage: 40 MG, QD
     Route: 065
  2. GABAPENTIN. [Suspect]
     Active Substance: GABAPENTIN
     Indication: PRODUCT USED FOR UNKNOWN INDICATION
     Dosage: 1200 MG, QD
     Route: 065

REACTIONS (16)
  - Acute kidney injury [Unknown]
  - Rhabdomyolysis [Unknown]
  - Hypoxia [Unknown]
  - Pyrexia [Recovered/Resolved]
  - Urinary incontinence [Unknown]
  - Catatonia [Recovering/Resolving]
  - Respiratory depression [Unknown]
  - Hypophagia [Unknown]
  - Activities of daily living impaired [Recovering/Resolving]
  - Muscle rigidity [Unknown]
  - Memory impairment [Recovering/Resolving]
  - Multiple organ dysfunction syndrome [Unknown]
  - Loss of consciousness [Unknown]
  - Overdose [Unknown]
  - Social avoidant behaviour [Recovering/Resolving]
  - Aphasia [Recovering/Resolving]
